FAERS Safety Report 15766734 (Version 1)
Quarter: 2018Q4

REPORT INFORMATION
  Report Type: Spontaneous
  Country: IT (occurrence: IT)
  Receive Date: 20181227
  Receipt Date: 20181227
  Transmission Date: 20190205
  Serious: Yes (Death, Life-Threatening, Hospitalization)
  Sender: FDA-Public Use
  Company Number: PHHY2018IT196177

PATIENT
  Age: 71 Year
  Sex: Male

DRUGS (1)
  1. PAZOPANIB [Suspect]
     Active Substance: PAZOPANIB
     Indication: PRODUCT USED FOR UNKNOWN INDICATION
     Dosage: UNK
     Route: 065

REACTIONS (5)
  - Myocarditis [Fatal]
  - Loss of consciousness [Fatal]
  - Cardiovascular disorder [Fatal]
  - Atrioventricular block [Fatal]
  - Cardiopulmonary failure [Fatal]
